FAERS Safety Report 6023642-9 (Version None)
Quarter: 2008Q4

REPORT INFORMATION
  Report Type: 
  Country: None (occurrence: None)
  Receive Date: 20081229
  Receipt Date: 20081229
  Transmission Date: 20090506
  Serious: No
  Sender: FDA-Public Use
  Company Number: None

PATIENT
  Age: 38 Year
  Sex: Female
  Weight: 90.7194 kg

DRUGS (1)
  1. ZICAM [Suspect]
     Indication: INFLUENZA LIKE ILLNESS
     Dosage: ONE SQUIRT INTO EACH NOSTRIL 1 X NASAL
     Route: 045
     Dates: start: 20081223, end: 20081223

REACTIONS (8)
  - BURNING SENSATION [None]
  - BURNS THIRD DEGREE [None]
  - ERYTHEMA [None]
  - FEAR [None]
  - PAIN [None]
  - PAIN IN JAW [None]
  - THERMAL BURN [None]
  - TOOTHACHE [None]
